FAERS Safety Report 25264785 (Version 1)
Quarter: 2025Q2

REPORT INFORMATION
  Report Type: Spontaneous
  Country: US (occurrence: US)
  Receive Date: 20250502
  Receipt Date: 20250502
  Transmission Date: 20250716
  Serious: Yes (Hospitalization, Other)
  Sender: PURDUE
  Company Number: US-PURDUE-USA-2025-0317177

PATIENT
  Sex: Male

DRUGS (2)
  1. DEXTROAMPHETAMINE SACCHARATE, AMPHETAMINE ASPARTATE, DEXTROAMPHETAMINE [Suspect]
     Active Substance: AMPHETAMINE ASPARTATE\AMPHETAMINE SULFATE\DEXTROAMPHETAMINE SACCHARATE\DEXTROAMPHETAMINE SULFATE
     Indication: Product used for unknown indication
     Route: 048
  2. METHAMPHETAMINE [Suspect]
     Active Substance: METHAMPHETAMINE
     Indication: Product used for unknown indication
     Route: 048

REACTIONS (9)
  - Illness [Unknown]
  - Abnormal behaviour [Unknown]
  - Disturbance in attention [Unknown]
  - Toxicity to various agents [Unknown]
  - Restlessness [Unknown]
  - Logorrhoea [Unknown]
  - Vomiting [Unknown]
  - Accidental exposure to product by child [Unknown]
  - Drug screen positive [Unknown]

NARRATIVE: CASE EVENT DATE: 20241206
